FAERS Safety Report 8867645 (Version 1)
Quarter: 2012Q4

REPORT INFORMATION
  Report Type: 
  Country: US (occurrence: US)
  Receive Date: 20121025
  Receipt Date: 20121025
  Transmission Date: 20130627
  Serious: No
  Sender: FDA-Public Use
  Company Number: US-AMGEN-USASP2012017815

PATIENT
  Age: 37 Year
  Sex: Male
  Weight: 124.72 kg

DRUGS (5)
  1. ENBREL [Suspect]
     Indication: PRODUCT USED FOR UNKNOWN INDICATION
     Dosage: 50 mg, qwk
     Route: 058
  2. METHOTREXATE [Concomitant]
  3. DIOVAN [Concomitant]
     Dosage: 320 mg, UNK
  4. TOPROL [Concomitant]
     Dosage: 100 mg, UNK
  5. VITAMIN D /00107901/ [Concomitant]
     Dosage: 1000 IU, UNK

REACTIONS (3)
  - Sinusitis [Unknown]
  - Injection site pruritus [Unknown]
  - Injection site rash [Unknown]
